FAERS Safety Report 6297826-9 (Version None)
Quarter: 2009Q3

REPORT INFORMATION
  Report Type: 
  Country: None (occurrence: None)
  Receive Date: 20090805
  Receipt Date: 20090408
  Transmission Date: 20100115
  Serious: Yes (Hospitalization)
  Sender: FDA-Public Use
  Company Number: PHHO2009FR04632

PATIENT
  Sex: Male
  Weight: 80 kg

DRUGS (9)
  1. RAD 666 RAD+TAB [Suspect]
     Indication: RENAL CANCER METASTATIC
     Dosage: 5-10MG DAILY
     Route: 048
     Dates: start: 20090129, end: 20090312
  2. BEVACIZUMAB [Concomitant]
  3. SUNITINIB MALATE [Concomitant]
  4. SORAFENIB [Concomitant]
  5. INTERFERON [Concomitant]
  6. RILMENIDINE [Concomitant]
  7. NICARDIPINE HYDROCHLORIDE [Concomitant]
  8. TELMISARTAN [Concomitant]
  9. HYDROCHLOROTHIAZIDE [Concomitant]

REACTIONS (1)
  - BONE PAIN [None]
